FAERS Safety Report 24073640 (Version 1)
Quarter: 2024Q3

REPORT INFORMATION
  Report Type: Spontaneous
  Country: RU (occurrence: RU)
  Receive Date: 20240710
  Receipt Date: 20240710
  Transmission Date: 20241016
  Serious: Yes (Other)
  Sender: ROCHE
  Company Number: RU-ROCHE-10000016806

PATIENT
  Age: 54 Year
  Sex: Male

DRUGS (1)
  1. TECENTRIQ [Suspect]
     Active Substance: ATEZOLIZUMAB
     Indication: Product use in unapproved indication
     Route: 065

REACTIONS (4)
  - Haemorrhagic stroke [Unknown]
  - Monoparesis [Unknown]
  - Partial seizures [Unknown]
  - Cerebral haematoma [Unknown]
